FAERS Safety Report 26140132 (Version 1)
Quarter: 2025Q4

REPORT INFORMATION
  Report Type: Spontaneous
  Country: US (occurrence: US)
  Receive Date: 20251210
  Receipt Date: 20251210
  Transmission Date: 20260117
  Serious: No
  Sender: SANDOZ
  Company Number: US-SANDOZ-SDZ2025US092682

PATIENT
  Age: 44 Year
  Sex: Male

DRUGS (1)
  1. ALBUTEROL SULFATE [Suspect]
     Active Substance: ALBUTEROL SULFATE
     Indication: Asthma
     Dosage: 2 PUFFS TWICE DAILY
     Route: 055

REACTIONS (3)
  - Circumstance or information capable of leading to device use error [Unknown]
  - Product supply issue [Unknown]
  - Device issue [Unknown]
